FAERS Safety Report 16723588 (Version 1)
Quarter: 2019Q3

REPORT INFORMATION
  Report Type: Spontaneous
  Country: US (occurrence: US)
  Receive Date: 20190821
  Receipt Date: 20190821
  Transmission Date: 20191005
  Serious: Yes (Other)
  Sender: FDA-Public Use
  Company Number: US-HIKMA PHARMACEUTICALS USA INC.-US-H14001-19-46627

PATIENT
  Age: 51 Year
  Sex: Female

DRUGS (2)
  1. ESTROGEN [Suspect]
     Active Substance: ESTROGENS
     Indication: HORMONE REPLACEMENT THERAPY
     Dosage: ()
     Route: 065
  2. PROGESTERONE. [Suspect]
     Active Substance: PROGESTERONE
     Indication: HORMONE REPLACEMENT THERAPY
     Route: 065

REACTIONS (5)
  - Punctate keratitis [Unknown]
  - Keratoconus [Unknown]
  - Eye opacity [Unknown]
  - Conjunctivitis allergic [Unknown]
  - Disease progression [Unknown]
